FAERS Safety Report 6937448-7 (Version None)
Quarter: 2010Q3

REPORT INFORMATION
  Report Type: 
  Country: None (occurrence: None)
  Receive Date: 20100823
  Receipt Date: 20100823
  Transmission Date: 20110219
  Serious: Yes (Hospitalization)
  Sender: FDA-Public Use
  Company Number: None

PATIENT
  Age: 25 Year
  Sex: Female
  Weight: 52.1637 kg

DRUGS (4)
  1. AVELOX [Suspect]
     Indication: PNEUMONIA
     Dosage: 1 TABLET EVERY 24 HOURS PO
     Route: 048
     Dates: start: 20100727, end: 20100730
  2. ASMANEX TWISTHALER [Suspect]
     Indication: PNEUMONIA
     Dosage: 14 METERED DOSES TWICE DAILY PO
     Route: 048
     Dates: start: 20100727, end: 20100730
  3. AVELOX [Concomitant]
  4. ASMANEX HALER [Concomitant]

REACTIONS (5)
  - ARTHRITIS [None]
  - BURNING SENSATION [None]
  - MUSCULOSKELETAL PAIN [None]
  - PAIN IN EXTREMITY [None]
  - PARAESTHESIA [None]
